FAERS Safety Report 11340370 (Version 1)
Quarter: 2015Q3

REPORT INFORMATION
  Report Type: Spontaneous
  Country: US (occurrence: None)
  Receive Date: 20150803
  Receipt Date: 20150803
  Transmission Date: 20151125
  Serious: No
  Sender: FDA-Public Use
  Company Number: None

PATIENT
  Age: 46 Year
  Sex: Male

DRUGS (1)
  1. WARFARIN [Suspect]
     Active Substance: WARFARIN
     Indication: ANTICOAGULANT THERAPY
     Route: 048
     Dates: start: 20140811

REACTIONS (7)
  - Abdominal pain [None]
  - International normalised ratio increased [None]
  - Nausea [None]
  - Incision site ulcer [None]
  - Vomiting [None]
  - Decreased appetite [None]
  - Abdominal distension [None]

NARRATIVE: CASE EVENT DATE: 20140811
